FAERS Safety Report 24814940 (Version 4)
Quarter: 2025Q1

REPORT INFORMATION
  Report Type: Report from Study
  Country: US (occurrence: US)
  Receive Date: 20250107
  Receipt Date: 20250313
  Transmission Date: 20250408
  Serious: Yes (Hospitalization)
  Sender: ABBVIE
  Company Number: US-ABBVIE-6072937

PATIENT
  Age: 70 Year
  Sex: Female

DRUGS (1)
  1. VENCLEXTA [Suspect]
     Active Substance: VENETOCLAX
     Indication: Myelodysplastic syndrome
     Dosage: ONCE DAILY ON DAYS 1-14 OF EVERY 28 DAY CYCLE
     Route: 048
     Dates: start: 20241209

REACTIONS (11)
  - Anaemia [Unknown]
  - Breast pain [Unknown]
  - Weight decreased [Unknown]
  - Asthenia [Unknown]
  - Blood iron decreased [Unknown]
  - Nasopharyngitis [Unknown]
  - Dehydration [Unknown]
  - Nausea [Unknown]
  - Lipoma of breast [Unknown]
  - White blood cell count decreased [Unknown]
  - Influenza [Unknown]

NARRATIVE: CASE EVENT DATE: 20250101
